FAERS Safety Report 9856850 (Version 1)
Quarter: 2014Q1

REPORT INFORMATION
  Report Type: Spontaneous
  Country: PT (occurrence: PT)
  Receive Date: 20140130
  Receipt Date: 20140130
  Transmission Date: 20141002
  Serious: Yes (Other)
  Sender: FDA-Public Use
  Company Number: PT-VERTEX PHARMACEUTICALS INC-2014-000443

PATIENT
  Sex: Male

DRUGS (5)
  1. INCIVO [Suspect]
     Indication: HEPATITIS C
     Dosage: 375 MG, QD
     Route: 048
     Dates: start: 20131115
  2. RIBAVIRIN [Suspect]
     Indication: HEPATITIS C
  3. PEG-INTERFERON [Suspect]
     Indication: HEPATITIS C
  4. OMEPRAZOLE [Concomitant]
  5. INDERAL [Concomitant]

REACTIONS (4)
  - Retinal vein thrombosis [Not Recovered/Not Resolved]
  - Blindness [Unknown]
  - Thrombocytopenia [Unknown]
  - Anaemia [Unknown]
